FAERS Safety Report 6314612-1 (Version None)
Quarter: 2009Q3

REPORT INFORMATION
  Report Type: 
  Country: None (occurrence: None)
  Receive Date: 20090817
  Receipt Date: 20090817
  Transmission Date: 20100115
  Serious: Yes (Other)
  Sender: FDA-Public Use
  Company Number: None

PATIENT
  Age: 16 Year
  Sex: Female
  Weight: 79.5 kg

DRUGS (2)
  1. YAZ [Suspect]
     Indication: POLYCYSTIC OVARIES
     Dosage: 1 PILL DAILY ORAL
     Route: 048
     Dates: start: 20081101, end: 20090401
  2. FORTAMET [Concomitant]

REACTIONS (2)
  - ANXIETY [None]
  - DEPRESSION [None]
